FAERS Safety Report 8559576-5 (Version None)
Quarter: 2012Q2

REPORT INFORMATION
  Report Type: 
  Country: None (occurrence: None)
  Receive Date: 20120418
  Receipt Date: 20080919
  Transmission Date: 20120825
  Serious: Yes (Other)
  Sender: FDA-Public Use
  Company Number: PHEH2008US08249

PATIENT
  Age: 86 Year
  Sex: Female

DRUGS (1)
  1. DIOVAN [Suspect]
     Dosage: 160 MG; 80 MG
     Dates: start: 20080201

REACTIONS (6)
  - HYPERTENSION [None]
  - FATIGUE [None]
  - ABDOMINAL DISTENSION [None]
  - BLOOD PRESSURE FLUCTUATION [None]
  - CONSTIPATION [None]
  - PAIN [None]
